FAERS Safety Report 19402426 (Version 1)
Quarter: 2021Q2

REPORT INFORMATION
  Report Type: Spontaneous
  Country: FR (occurrence: FR)
  Receive Date: 20210610
  Receipt Date: 20210610
  Transmission Date: 20210717
  Serious: Yes (Other)
  Sender: FDA-Public Use
  Company Number: FR-FRESENIUS KABI-FK202105881

PATIENT
  Age: 54 Year
  Sex: Male
  Weight: 63 kg

DRUGS (1)
  1. VANCOMYCIN (MANUFACTURER UNKNOWN) [Suspect]
     Active Substance: VANCOMYCIN
     Indication: SYSTEMIC INFECTION
     Dosage: DILUTED IN 5 PERCENT GLUCOSE, 31.25MG/ML AT A MAXIMAL DOSAGE OF 4ML/HOUR
     Route: 041

REACTIONS (3)
  - Skin necrosis [Recovered/Resolved]
  - Calcinosis [Recovered/Resolved]
  - Infusion site extravasation [Recovered/Resolved]
